FAERS Safety Report 13778755 (Version 3)
Quarter: 2018Q1

REPORT INFORMATION
  Report Type: Spontaneous
  Country: US (occurrence: US)
  Receive Date: 20170721
  Receipt Date: 20180110
  Transmission Date: 20180508
  Serious: No
  Sender: FDA-Public Use
  Company Number: US-PFIZER INC-2017309882

PATIENT
  Age: 70 Year
  Sex: Female
  Weight: 76 kg

DRUGS (19)
  1. CLARITIN [Concomitant]
     Active Substance: LORATADINE
     Indication: HYPERSENSITIVITY
     Dosage: 10 MG, ONCE A DAY
     Route: 048
     Dates: start: 20170330
  2. GLUCOSAMINE SULFATE [Concomitant]
     Active Substance: GLUCOSAMINE SULFATE
     Indication: ARTHRALGIA
     Dosage: 1000 MG, ONCE A DAY
     Route: 048
     Dates: start: 20170117
  3. IBRANCE [Suspect]
     Active Substance: PALBOCICLIB
     Dosage: 100 MG, CYCLIC (21 DAYS ONCE A DAY, THEN OFF 7 DAYS)
     Dates: start: 20170213
  4. VITAMIN B COMPLEX WITH C [Concomitant]
     Active Substance: ASCORBIC ACID\CALCIUM PANTOTHENATE\CYANOCOBALAMIN\NIACINAMIDE\PYRIDOXINE HYDROCHLORIDE\RIBOFLAVIN\THIAMINE MONONITRATE
     Indication: SUPPLEMENTATION THERAPY
     Dosage: UNK
     Route: 048
     Dates: start: 20161214
  5. LETROZOLE. [Suspect]
     Active Substance: LETROZOLE
     Indication: BREAST CANCER FEMALE
     Dosage: 2.5 MG, 1X/DAY
     Route: 048
     Dates: start: 20170206
  6. B-STRESS [Concomitant]
     Indication: SUPPLEMENTATION THERAPY
     Dosage: UNK, 2X/DAY
     Route: 048
     Dates: start: 20170117
  7. VITAMIN E [Concomitant]
     Active Substance: .ALPHA.-TOCOPHEROL
     Indication: SUPPLEMENTATION THERAPY
     Dosage: 400 IU, ONCE A DAY
     Route: 048
     Dates: start: 20161214
  8. OCEAN NASAL [Concomitant]
     Indication: HYPERSENSITIVITY
     Dosage: 2 DF, 4X/DAY (2 PUFFS TO EACH NARE 4 X DAILY)
     Route: 055
     Dates: start: 20170330
  9. IBRANCE [Suspect]
     Active Substance: PALBOCICLIB
     Indication: BREAST CANCER METASTATIC
     Dosage: 125 MG, CYCLIC (DAILY FOR 21 DAYS ON A 28-DAY CYCLE)
     Route: 048
     Dates: start: 20170213
  10. VITAMIN D3 [Concomitant]
     Active Substance: CHOLECALCIFEROL
     Indication: OSTEOPENIA
     Dosage: 1000 IU, ONCE A DAY
     Route: 048
     Dates: start: 20170330
  11. LACTAID [Concomitant]
     Active Substance: LACTASE
     Indication: MINERAL SUPPLEMENTATION
     Dosage: 3000 IU, ONCE A DAY
     Route: 048
     Dates: start: 20170330
  12. VITAMIN D3 [Concomitant]
     Active Substance: CHOLECALCIFEROL
     Indication: VITAMIN D DEFICIENCY
  13. LISINOPRIL. [Concomitant]
     Active Substance: LISINOPRIL
     Indication: BLOOD PRESSURE ABNORMAL
     Dosage: 20 MG, DAILY
     Route: 048
     Dates: start: 20170330
  14. METOPROLOL TARTRATE. [Concomitant]
     Active Substance: METOPROLOL TARTRATE
     Indication: BLOOD PRESSURE ABNORMAL
     Dosage: 25 MG, TWICE A DAY
     Route: 048
     Dates: start: 20170330
  15. PROLIA [Suspect]
     Active Substance: DENOSUMAB
     Indication: BREAST CANCER
     Dosage: UNK(1 INJECTION, TWICE PER YEAR)
     Dates: start: 2014
  16. CALCIUM + D [Concomitant]
     Active Substance: CALCIUM\VITAMIN D
     Indication: OSTEOPENIA
     Dosage: UNK, 1X/DAYONCE A DAY (CALCIUM: 315 MG; COLECALCIFEROL: 200 MG)
     Route: 048
     Dates: start: 20161214
  17. ONE-A-DAY WOMEN^S [Concomitant]
     Active Substance: VITAMINS
     Indication: SUPPLEMENTATION THERAPY
     Dosage: UNK, 1X/DAY
     Route: 048
     Dates: start: 20161214
  18. LETROZOLE. [Suspect]
     Active Substance: LETROZOLE
     Dosage: 2.5 MG, DAILY
     Route: 048
     Dates: start: 20170213
  19. PROLIA [Suspect]
     Active Substance: DENOSUMAB
     Dosage: 60 MG/ML, AS NEEDED (AS DIRECTED 2 INJECTIONS A YEAR)
     Route: 058
     Dates: start: 20170213

REACTIONS (13)
  - Dysgeusia [Recovered/Resolved]
  - Fatigue [Recovered/Resolved]
  - Dehydration [Recovered/Resolved]
  - Stress [Recovering/Resolving]
  - Muscle spasms [Recovered/Resolved]
  - Reaction to excipient [Unknown]
  - Abdominal pain [Recovering/Resolving]
  - Alopecia [Recovering/Resolving]
  - Depression [Recovered/Resolved]
  - Diarrhoea [Recovering/Resolving]
  - Stomatitis [Recovering/Resolving]
  - Crying [Recovered/Resolved]
  - Weight increased [Recovered/Resolved]

NARRATIVE: CASE EVENT DATE: 201702
